FAERS Safety Report 9145265 (Version 1)
Quarter: 2013Q1

REPORT INFORMATION
  Report Type: Spontaneous
  Country: US (occurrence: None)
  Receive Date: 20130226
  Receipt Date: 20130226
  Transmission Date: 20140127
  Serious: Yes (Other)
  Sender: FDA-Public Use
  Company Number: None

PATIENT
  Age: 70 Year
  Sex: Female
  Weight: 55.79 kg

DRUGS (1)
  1. IRINOTECAN [Suspect]
     Indication: CHOLANGIOCARCINOMA
     Dosage: 207MG  EVERY 3 WEEKS  IV
     Route: 042
     Dates: start: 20130219, end: 20130219

REACTIONS (5)
  - Dysarthria [None]
  - Tongue disorder [None]
  - Abdominal pain [None]
  - Diarrhoea [None]
  - Speech disorder [None]
